FAERS Safety Report 10377059 (Version 10)
Quarter: 2015Q3

REPORT INFORMATION
  Report Type: Report from Study
  Country: CA (occurrence: CA)
  Receive Date: 20140812
  Receipt Date: 20150701
  Transmission Date: 20151125
  Serious: Yes (Hospitalization, Other)
  Sender: FDA-Public Use
  Company Number: CA-ROCHE-1254453

PATIENT
  Age: 65 Year
  Sex: Female
  Weight: 81.6 kg

DRUGS (14)
  1. VITAMIN B COMPLEX [Concomitant]
     Active Substance: CYANOCOBALAMIN\DEXPANTHENOL\NIACINAMIDE\PYRIDOXINE HYDROCHLORIDE\RIBOFLAVIN 5^-PHOSPHATE SODIUM\THIAMINE HYDROCHLORIDE\VITAMIN B COMPLEX
  2. RITUXAN [Suspect]
     Active Substance: RITUXIMAB
     Indication: RHEUMATOID ARTHRITIS
     Dosage: DAY 1 AND DAY 15,?LAST INFUSION ON- 19/FEB/2014?LAST INFUSION: 27/NOV/2014
     Route: 042
     Dates: start: 20130725
  3. PREDNISONE. [Concomitant]
     Active Substance: PREDNISONE
  4. LOSEC [Concomitant]
     Active Substance: OMEPRAZOLE
  5. OMEGA 3 [Concomitant]
     Active Substance: OMEGA-3 FATTY ACIDS
  6. FOLIC ACID. [Concomitant]
     Active Substance: FOLIC ACID
  7. ACETAMINOPHEN. [Concomitant]
     Active Substance: ACETAMINOPHEN
     Indication: PREMEDICATION
     Route: 048
     Dates: start: 20130725
  8. MELOXICAM. [Concomitant]
     Active Substance: MELOXICAM
  9. AMITRIPTYLINE [Concomitant]
     Active Substance: AMITRIPTYLINE
  10. OMEPRAZOLE. [Concomitant]
     Active Substance: OMEPRAZOLE
  11. ACTONEL [Concomitant]
     Active Substance: RISEDRONATE SODIUM
  12. DIPHENHYDRAMINE HCL [Concomitant]
     Active Substance: DIPHENHYDRAMINE HYDROCHLORIDE
     Indication: PREMEDICATION
     Route: 048
     Dates: start: 20130725
  13. HYDROXYCHLOROQUINE [Concomitant]
     Active Substance: HYDROXYCHLOROQUINE
  14. METHYLPREDNISOLONE. [Concomitant]
     Active Substance: METHYLPREDNISOLONE
     Indication: PREMEDICATION
     Route: 042
     Dates: start: 20130725

REACTIONS (16)
  - Herpes zoster [Unknown]
  - Injection site extravasation [Unknown]
  - Fall [Unknown]
  - Infusion related reaction [Unknown]
  - Hypotension [Unknown]
  - Urinary tract inflammation [Recovering/Resolving]
  - Neuralgia [Not Recovered/Not Resolved]
  - Joint swelling [Unknown]
  - Dysuria [Recovering/Resolving]
  - Peripheral swelling [Unknown]
  - Arthralgia [Unknown]
  - Impaired healing [Unknown]
  - Hip fracture [Recovering/Resolving]
  - Hypoaesthesia [Not Recovered/Not Resolved]
  - Arthritis [Not Recovered/Not Resolved]
  - Medication error [Unknown]

NARRATIVE: CASE EVENT DATE: 20130725
